FAERS Safety Report 18927471 (Version 4)
Quarter: 2023Q2

REPORT INFORMATION
  Report Type: Report from Study
  Country: US (occurrence: US)
  Receive Date: 20210223
  Receipt Date: 20230427
  Transmission Date: 20230722
  Serious: No
  Sender: FDA-Public Use
  Company Number: NVSC2021US036643

PATIENT
  Age: 14 Year
  Sex: Female

DRUGS (2)
  1. ILARIS [Suspect]
     Active Substance: CANAKINUMAB
     Indication: Cryopyrin associated periodic syndrome
     Dosage: 150 MG EVERY 6 WEEKS
     Route: 058
     Dates: start: 20200514
  2. ILARIS [Suspect]
     Active Substance: CANAKINUMAB
     Dosage: 150 MG, EVERY 8 WEEKS
     Route: 058
     Dates: start: 20200515

REACTIONS (4)
  - Pain [Unknown]
  - Illness [Unknown]
  - Inappropriate schedule of product administration [Unknown]
  - Therapeutic product effect decreased [Unknown]

NARRATIVE: CASE EVENT DATE: 20210211
